FAERS Safety Report 6276804-X (Version None)
Quarter: 2009Q3

REPORT INFORMATION
  Report Type: 
  Country: None (occurrence: None)
  Receive Date: 20090722
  Receipt Date: 20080903
  Transmission Date: 20100115
  Serious: No
  Sender: FDA-Public Use
  Company Number: US-BRISTOL-MYERS SQUIBB COMPANY-14323315

PATIENT
  Age: 85 Year
  Sex: Female

DRUGS (1)
  1. COUMADIN [Suspect]
     Indication: HEART RATE IRREGULAR
     Dosage: DOSAGE WAS DECREASED TO 1.25MG MONDAY THROUGH FRIDAY AND 1MG ON SATURDAY+SUNDAY
     Dates: start: 20080101

REACTIONS (4)
  - ALOPECIA [None]
  - HEART RATE IRREGULAR [None]
  - INTERNATIONAL NORMALISED RATIO FLUCTUATION [None]
  - MALAISE [None]
